FAERS Safety Report 6897409-3 (Version None)
Quarter: 2010Q3

REPORT INFORMATION
  Report Type: 
  Country: None (occurrence: None)
  Receive Date: 20100802
  Receipt Date: 20070529
  Transmission Date: 20110219
  Serious: No
  Sender: FDA-Public Use
  Company Number: US-PFIZER INC-2007029031

PATIENT
  Sex: Female
  Weight: 55.3 kg

DRUGS (4)
  1. LYRICA [Suspect]
     Indication: SCIATICA
     Dates: start: 20070301
  2. ANTIHYPERTENSIVES [Concomitant]
     Indication: HYPERTENSION
  3. PLAVIX [Concomitant]
  4. TOPROL-XL [Concomitant]

REACTIONS (1)
  - DRUG INEFFECTIVE [None]
